FAERS Safety Report 4383571-3 (Version None)
Quarter: 2004Q2

REPORT INFORMATION
  Report Type: 
  Country: None (occurrence: None)
  Receive Date: 20040618
  Receipt Date: 20040607
  Transmission Date: 20050107
  Serious: Yes (Other)
  Sender: FDA-Public Use
  Company Number: GB-JNJFOC-20040505026

PATIENT
  Age: 41 Year
  Sex: Male
  Weight: 80 kg

DRUGS (4)
  1. TOPAMAX [Suspect]
     Indication: EPILEPSY
     Dosage: 175 MG, 2 IN 1 DAY, ORAL; 975 MG, 1 IN 1 DAY, ORAL
     Route: 048
  2. RISPERDAL [Concomitant]
  3. KEPPRA (LEVITIRACETAM) [Concomitant]
  4. CARBAMEZAPINE (CARBAMAZEPINE) [Concomitant]

REACTIONS (3)
  - OVERDOSE [None]
  - SEDATION [None]
  - SOMNOLENCE [None]
